FAERS Safety Report 8992982 (Version 2)
Quarter: 2013Q1

REPORT INFORMATION
  Report Type: Spontaneous
  Country: BR (occurrence: BR)
  Receive Date: 20130102
  Receipt Date: 20130107
  Transmission Date: 20140127
  Serious: No
  Sender: FDA-Public Use
  Company Number: PHHY2012BR121400

PATIENT
  Sex: Female
  Weight: 46 kg

DRUGS (6)
  1. EXELON PATCH [Suspect]
     Indication: MEMORY IMPAIRMENT
     Dosage: 9.5 MG\24 HRS
     Route: 062
     Dates: start: 201110, end: 201201
  2. AMARYL [Concomitant]
     Dosage: 1 DF, DAILY
     Route: 048
  3. GLIFAGE [Concomitant]
     Dosage: 1 DF, DAILY
     Route: 048
  4. PRESSAT [Concomitant]
     Dosage: 1 DF, DAILY
     Route: 048
  5. CLOPIDOGREL BISULFATE [Concomitant]
     Dosage: 1 DF, DAILY
     Route: 048
  6. LIPITOR [Concomitant]
     Dosage: 1 DF, DAILY
     Route: 048

REACTIONS (2)
  - Disorientation [Recovered/Resolved]
  - Hallucination [Recovered/Resolved]
